FAERS Safety Report 26102036 (Version 1)
Quarter: 2025Q4

REPORT INFORMATION
  Report Type: Spontaneous
  Country: CN (occurrence: CN)
  Receive Date: 20251128
  Receipt Date: 20251128
  Transmission Date: 20260117
  Serious: Yes (Other)
  Sender: IDORSIA PHARMACEUTICALS
  Company Number: CN-HAINAN SIMCERE CO., LTD.-2025XSYY4771

PATIENT
  Age: 28 Year
  Sex: Female

DRUGS (2)
  1. QUVIVIQ [Suspect]
     Active Substance: DARIDOREXANT
     Indication: Insomnia
     Dosage: 1 DOSAGE FORM, QD
     Route: 048
     Dates: start: 20251115, end: 20251115
  2. ESTAZOLAM [Concomitant]
     Active Substance: ESTAZOLAM
     Indication: Insomnia
     Dosage: 1 DOSAGE FORM, QD
     Route: 048

REACTIONS (5)
  - Angina pectoris [Recovering/Resolving]
  - Therapeutic product effect delayed [Recovering/Resolving]
  - Nightmare [Recovered/Resolved]
  - Headache [Recovering/Resolving]
  - Tinnitus [Recovering/Resolving]

NARRATIVE: CASE EVENT DATE: 20251115
